FAERS Safety Report 13386458 (Version 3)
Quarter: 2017Q2

REPORT INFORMATION
  Report Type: Spontaneous
  Country: JP (occurrence: JP)
  Receive Date: 20170330
  Receipt Date: 20170531
  Transmission Date: 20170830
  Serious: Yes (Death, Life-Threatening, Hospitalization, Other)
  Sender: FDA-Public Use
  Company Number: JP-BRISTOL-MYERS SQUIBB COMPANY-BMS-2017-020473

PATIENT
  Age: 86 Year
  Sex: Male
  Weight: 40 kg

DRUGS (8)
  1. ELIQUIS [Suspect]
     Active Substance: APIXABAN
     Indication: CEREBROVASCULAR ACCIDENT PROPHYLAXIS
     Dosage: 2.5 MG, BID
     Route: 048
     Dates: start: 20140127, end: 20170226
  2. NEXIUM [Concomitant]
     Active Substance: ESOMEPRAZOLE MAGNESIUM
     Indication: PRODUCT USED FOR UNKNOWN INDICATION
     Dosage: 20 MG, QD FOR FOR INABILITY TO TAKE BROUGHT DRUGS ORALLY
     Route: 048
     Dates: end: 20170226
  3. BENIDIPINE HYDROCHLORIDE [Concomitant]
     Active Substance: BENIDIPINE HYDROCHLORIDE
     Indication: PRODUCT USED FOR UNKNOWN INDICATION
     Dosage: 4 MG, QD FOR INABILITY TO TAKE BROUGHT DRUGS ORALLY
     Route: 048
     Dates: start: 20170226
  4. RELVAR [Concomitant]
     Active Substance: FLUTICASONE FUROATE\VILANTEROL TRIFENATATE
     Indication: PRODUCT USED FOR UNKNOWN INDICATION
     Dosage: 200 ?G, QD FOR INABILITY TO TAKE BROUGHT INHALERS
     Route: 065
     Dates: end: 20170226
  5. BETANIS [Concomitant]
     Active Substance: MIRABEGRON
     Indication: PRODUCT USED FOR UNKNOWN INDICATION
     Dosage: 50 MG, QD FOR INABILITY TO TAKE BROUGHT DRUGS ORALLY
     Route: 048
     Dates: end: 20170226
  6. MEPTIN [Concomitant]
     Active Substance: PROCATEROL HYDROCHLORIDE
     Indication: PRODUCT USED FOR UNKNOWN INDICATION
     Dosage: 10 ?G, QD FOR INABILITY TO TAKE BROUGHT INHALERS
     Route: 065
     Dates: end: 20170226
  7. ISOSORBIDE DINITRATE. [Concomitant]
     Active Substance: ISOSORBIDE DINITRATE
     Indication: PRODUCT USED FOR UNKNOWN INDICATION
     Dosage: 40 MG, QD FOR RESUMPTION OF APPLICATION OF BROUGHT DRUGS
     Route: 065
     Dates: end: 20170226
  8. ENCRUSE [Concomitant]
     Indication: PRODUCT USED FOR UNKNOWN INDICATION
     Dosage: 62.5 MG, QD FOR INABILITY TO TAKE BROUGHT INHALERS
     Route: 065
     Dates: end: 20170226

REACTIONS (3)
  - Haematoma evacuation [Unknown]
  - Cerebral haemorrhage [Recovered/Resolved with Sequelae]
  - Cardiac failure [Fatal]

NARRATIVE: CASE EVENT DATE: 20170226
